FAERS Safety Report 4382411-6 (Version None)
Quarter: 2004Q2

REPORT INFORMATION
  Report Type: 
  Country: None (occurrence: None)
  Receive Date: 20040617
  Receipt Date: 20040608
  Transmission Date: 20050107
  Serious: Yes (Hospitalization)
  Sender: FDA-Public Use
  Company Number: WAES 0404FRA00072

PATIENT
  Age: 21 Month
  Sex: Male

DRUGS (2)
  1. COSMEGEN [Suspect]
     Indication: NEPHROBLASTOMA
     Dosage: 180 MICROGM/TID IV
     Route: 042
     Dates: start: 20040327, end: 20040402
  2. VINCRISTINE SULFATE [Concomitant]

REACTIONS (4)
  - ANGIOMYOLIPOMA [None]
  - DRUG ERUPTION [None]
  - LICHEN PLANUS [None]
  - MUCOUS MEMBRANE DISORDER [None]
